FAERS Safety Report 18540014 (Version 1)
Quarter: 2020Q4

REPORT INFORMATION
  Report Type: Spontaneous
  Country: US (occurrence: US)
  Receive Date: 20201124
  Receipt Date: 20201124
  Transmission Date: 20210114
  Serious: Yes (Life-Threatening)
  Sender: FDA-Public Use
  Company Number: None

PATIENT
  Age: 89 Year
  Sex: Female
  Weight: 51.75 kg

DRUGS (4)
  1. METOPROLOL. [Concomitant]
     Active Substance: METOPROLOL
  2. MULTIVITAMIN [Concomitant]
     Active Substance: VITAMINS
  3. ZILRETTA [Suspect]
     Active Substance: TRIAMCINOLONE ACETONIDE
     Indication: ARTHRALGIA
     Route: 058
  4. LATANAPROST [Concomitant]
     Active Substance: LATANOPROST

REACTIONS (9)
  - Palpitations [None]
  - Asthenia [None]
  - Illness [None]
  - Mood altered [None]
  - Flushing [None]
  - Headache [None]
  - Hypertension [None]
  - Blood urea abnormal [None]
  - Fatigue [None]

NARRATIVE: CASE EVENT DATE: 20201026
